FAERS Safety Report 16842988 (Version 2)
Quarter: 2019Q4

REPORT INFORMATION
  Report Type: Spontaneous
  Country: US (occurrence: US)
  Receive Date: 20190924
  Receipt Date: 20191004
  Transmission Date: 20200122
  Serious: No
  Sender: FDA-Public Use
  Company Number: US-ASTRAZENECA-2019SF29116

PATIENT
  Sex: Female
  Weight: 56.7 kg

DRUGS (5)
  1. SYMBICORT [Suspect]
     Active Substance: BUDESONIDE\FORMOTEROL FUMARATE DIHYDRATE
     Indication: ASTHMA
     Dosage: UNKNOWN UNKNOWN
     Route: 055
  2. METFORMIN [Concomitant]
     Active Substance: METFORMIN HYDROCHLORIDE
  3. ALBUTEROL. [Suspect]
     Active Substance: ALBUTEROL
     Route: 065
  4. SYMBICORT [Suspect]
     Active Substance: BUDESONIDE\FORMOTEROL FUMARATE DIHYDRATE
     Indication: CHRONIC OBSTRUCTIVE PULMONARY DISEASE
     Dosage: UNKNOWN UNKNOWN
     Route: 055
  5. INSULIN [Concomitant]
     Active Substance: INSULIN NOS

REACTIONS (8)
  - Tremor [Unknown]
  - Pulmonary congestion [Unknown]
  - Dyspnoea [Unknown]
  - Cough [Unknown]
  - Cardiac failure congestive [Unknown]
  - Feeling abnormal [Unknown]
  - Intentional product use issue [Unknown]
  - Therapy cessation [Unknown]
